FAERS Safety Report 6227526-2 (Version None)
Quarter: 2009Q2

REPORT INFORMATION
  Report Type: 
  Country: None (occurrence: None)
  Receive Date: 20090612
  Receipt Date: 20090602
  Transmission Date: 20091009
  Serious: Yes (Hospitalization)
  Sender: FDA-Public Use
  Company Number: JP-WATSON-2009-04067

PATIENT
  Age: 62 Year
  Sex: Female

DRUGS (1)
  1. FLUOROURACIL [Suspect]
     Indication: RECTAL CANCER
     Dosage: 750 MG, 1/WEEK
     Route: 042
     Dates: start: 20030301

REACTIONS (2)
  - CARDIAC FAILURE CONGESTIVE [None]
  - STRESS CARDIOMYOPATHY [None]
